FAERS Safety Report 10034129 (Version 1)
Quarter: 2014Q1

REPORT INFORMATION
  Report Type: Spontaneous
  Country: CA (occurrence: None)
  Receive Date: 20140324
  Receipt Date: 20140324
  Transmission Date: 20141002
  Serious: Yes (Other)
  Sender: FDA-Public Use
  Company Number: None

PATIENT
  Age: 55 Year
  Sex: Female
  Weight: 65.77 kg

DRUGS (2)
  1. PAXIL [Suspect]
     Indication: MOOD SWINGS
     Dosage: 1 PILL
     Route: 048
     Dates: start: 20110301, end: 20140311
  2. PAXIL [Suspect]
     Indication: MENOPAUSE
     Dosage: 1 PILL
     Route: 048
     Dates: start: 20110301, end: 20140311

REACTIONS (24)
  - Nausea [None]
  - Dizziness [None]
  - Blepharospasm [None]
  - Unevaluable event [None]
  - Headache [None]
  - Feeling abnormal [None]
  - Feeling abnormal [None]
  - Influenza like illness [None]
  - Chest discomfort [None]
  - Hyperhidrosis [None]
  - Asthenia [None]
  - Fatigue [None]
  - Weight decreased [None]
  - Diarrhoea [None]
  - Lacrimation increased [None]
  - Tremor [None]
  - Dry mouth [None]
  - Decreased appetite [None]
  - Feeling of body temperature change [None]
  - Dehydration [None]
  - Anger [None]
  - Irritability [None]
  - Rhinorrhoea [None]
  - Tinnitus [None]
